FAERS Safety Report 8766706 (Version 3)
Quarter: 2012Q4

REPORT INFORMATION
  Report Type: 
  Country: SE (occurrence: SE)
  Receive Date: 20120904
  Receipt Date: 20121101
  Transmission Date: 20130627
  Serious: Yes (Death, Other)
  Sender: FDA-Public Use
  Company Number: SE-B.I. PHARMACEUTICALS,INC./RIDGEFIELD-2012-SW-00658SW

PATIENT
  Age: 83 Year
  Sex: Female

DRUGS (9)
  1. PRADAXA [Suspect]
     Indication: CEREBROVASCULAR ACCIDENT PROPHYLAXIS
     Dosage: 220 mg
     Route: 048
     Dates: start: 20120214, end: 20120306
  2. PRADAXA [Suspect]
     Indication: ATRIAL FIBRILLATION
  3. BISOPROLOL [Concomitant]
  4. FURIX [Concomitant]
  5. IMDUR [Concomitant]
  6. RAMIPRIL [Concomitant]
  7. ALLOPURINOL [Concomitant]
  8. LEVAXIN [Concomitant]
  9. SPIRONOLAKTON [Concomitant]

REACTIONS (6)
  - Death [Fatal]
  - Colon cancer [Unknown]
  - Metastases to liver [Unknown]
  - Anaemia [Unknown]
  - Dizziness [Unknown]
  - Fatigue [Unknown]
